FAERS Safety Report 11411519 (Version 1)
Quarter: 2015Q3

REPORT INFORMATION
  Report Type: Spontaneous
  Country: US (occurrence: US)
  Receive Date: 20150821
  Receipt Date: 20150821
  Transmission Date: 20151125
  Serious: No
  Sender: FDA-Public Use
  Company Number: US-ELI_LILLY_AND_COMPANY-US201008005869

PATIENT
  Age: 32 Year
  Sex: Female

DRUGS (3)
  1. PRENATAL VITAMINS /01549301/ [Concomitant]
     Active Substance: VITAMINS
  2. HUMULIN N [Suspect]
     Active Substance: INSULIN HUMAN
     Indication: GESTATIONAL DIABETES
     Dosage: 22 U, EACH EVENING
     Dates: start: 20100808
  3. METFORMIN [Concomitant]
     Active Substance: METFORMIN HYDROCHLORIDE
     Dosage: 2000 MG, DAILY (1/D)

REACTIONS (4)
  - Exposure during pregnancy [Not Recovered/Not Resolved]
  - High risk pregnancy [Not Recovered/Not Resolved]
  - Fatigue [Unknown]
  - Blood glucose increased [Unknown]

NARRATIVE: CASE EVENT DATE: 20100808
